FAERS Safety Report 18723751 (Version 1)
Quarter: 2021Q1

REPORT INFORMATION
  Report Type: Spontaneous
  Country: CA (occurrence: CA)
  Receive Date: 20210111
  Receipt Date: 20210111
  Transmission Date: 20210419
  Serious: Yes (Other)
  Sender: FDA-Public Use
  Company Number: CA-ACCORD-213489

PATIENT
  Sex: Male

DRUGS (9)
  1. METHOTREXATE. [Suspect]
     Active Substance: METHOTREXATE
     Indication: RHEUMATOID ARTHRITIS
     Route: 065
  2. TYLENOL [Concomitant]
     Active Substance: ACETAMINOPHEN
  3. XELJANZ [Concomitant]
     Active Substance: TOFACITINIB CITRATE
     Route: 048
  4. ADVIL [Concomitant]
     Active Substance: IBUPROFEN
  5. FOLIC ACID. [Concomitant]
     Active Substance: FOLIC ACID
  6. ACTEMRA [Suspect]
     Active Substance: TOCILIZUMAB
     Indication: RHEUMATOID ARTHRITIS
     Route: 065
  7. METHOTREXATE. [Concomitant]
     Active Substance: METHOTREXATE
     Indication: RHEUMATOID ARTHRITIS
     Route: 048
  8. CYANOCOBALAMIN. [Concomitant]
     Active Substance: CYANOCOBALAMIN
  9. TOFACITINIB [Concomitant]
     Active Substance: TOFACITINIB
     Route: 065

REACTIONS (6)
  - Swelling [Unknown]
  - Bronchial hyperreactivity [Unknown]
  - Gastric mucosal hypertrophy [Unknown]
  - Hand fracture [Unknown]
  - Pain [Unknown]
  - Rheumatoid nodule [Unknown]
